FAERS Safety Report 24685921 (Version 1)
Quarter: 2024Q4

REPORT INFORMATION
  Report Type: Spontaneous
  Country: US (occurrence: US)
  Receive Date: 20241202
  Receipt Date: 20241202
  Transmission Date: 20250114
  Serious: Yes (Hospitalization)
  Sender: MYLAN
  Company Number: US-MYLANLABS-2024M1104946

PATIENT
  Age: 3 Decade
  Sex: Female

DRUGS (9)
  1. METFORMIN [Suspect]
     Active Substance: METFORMIN HYDROCHLORIDE
     Indication: Postprandial hypoglycaemia
     Dosage: UNK
     Route: 065
  2. OCTREOTIDE [Suspect]
     Active Substance: OCTREOTIDE
     Indication: Postprandial hypoglycaemia
     Dosage: 50 MICROGRAM, SINGLE DOSE
     Route: 058
  3. ACARBOSE [Suspect]
     Active Substance: ACARBOSE
     Indication: Postprandial hypoglycaemia
     Dosage: 25 MILLIGRAM, TID, THREE TIMES DAILY BEFORE 30?MINUTES OF MEALS
     Route: 065
  4. ACARBOSE [Suspect]
     Active Substance: ACARBOSE
     Dosage: 100 MILLIGRAM, TID, THREE TIMES DAILY BEFORE 30?MINUTES OF MEALS
     Route: 065
  5. DEXTROSE [Concomitant]
     Active Substance: DEXTROSE MONOHYDRATE
     Indication: Postprandial hypoglycaemia
     Dosage: WITH SODIUM CHLORIDE, AT 125 ML/HOUR
     Route: 065
  6. DEXTROSE [Concomitant]
     Active Substance: DEXTROSE MONOHYDRATE
     Indication: Postprandial hypoglycaemia
     Dosage: WITH SODIUM CHLORIDE, AT 100 ML/HOUR
     Route: 065
  7. DEXTROSE [Concomitant]
     Active Substance: DEXTROSE MONOHYDRATE
     Dosage: WITH SODIUM CHLORIDE, AT 125 ML/HOUR
     Route: 065
  8. SODIUM CHLORIDE [Concomitant]
     Active Substance: SODIUM CHLORIDE
     Indication: Vehicle solution use
     Dosage: WITH GLUCOSE, AT 100 ML/HOUR
     Route: 065
  9. SODIUM CHLORIDE [Concomitant]
     Active Substance: SODIUM CHLORIDE
     Dosage: WITH GLUCOSE, AT 125 ML/HOUR
     Route: 065

REACTIONS (1)
  - Drug ineffective [Unknown]
